FAERS Safety Report 6087372-X (Version None)
Quarter: 2009Q1

REPORT INFORMATION
  Report Type: 
  Country: None (occurrence: None)
  Receive Date: 20090223
  Receipt Date: 20090210
  Transmission Date: 20090719
  Serious: Yes (Other)
  Sender: FDA-Public Use
  Company Number: B0560030A

PATIENT
  Age: 33 Year
  Sex: Male

DRUGS (2)
  1. ARIXTRA [Suspect]
     Dosage: 2.5MG PER DAY
     Route: 065
  2. LOVENOX [Suspect]
     Dosage: .4ML PER DAY
     Route: 065

REACTIONS (1)
  - HEPARIN-INDUCED THROMBOCYTOPENIA [None]
